FAERS Safety Report 15820250 (Version 3)
Quarter: 2019Q1

REPORT INFORMATION
  Report Type: Spontaneous
  Country: IT (occurrence: IT)
  Receive Date: 20190114
  Receipt Date: 20190204
  Transmission Date: 20190417
  Serious: Yes (Other)
  Sender: FDA-Public Use
  Company Number: IT-ORION CORPORATION ORION PHARMA-19_00005152

PATIENT
  Age: 87 Year
  Sex: Female
  Weight: 82 kg

DRUGS (3)
  1. ELIQUIS [Concomitant]
     Active Substance: APIXABAN
     Route: 065
  2. CORBILTA [Suspect]
     Active Substance: CARBIDOPA\ENTACAPONE\LEVODOPA
     Indication: PARKINSON^S DISEASE
     Dosage: STRENGTH- 125/31.25/200 MG, CUMULATIVE DOSE-  31.25 MG
     Route: 048
     Dates: start: 20181105, end: 20181109
  3. FLEIDERINA [Concomitant]
     Active Substance: FLECAINIDE ACETATE
     Route: 065

REACTIONS (5)
  - Psychomotor hyperactivity [Recovered/Resolved]
  - Abdominal pain [Recovered/Resolved]
  - Disorientation [Recovered/Resolved]
  - Dysphagia [Recovered/Resolved]
  - Dyspepsia [Recovered/Resolved]

NARRATIVE: CASE EVENT DATE: 20181105
